FAERS Safety Report 12157628 (Version 1)
Quarter: 2016Q1

REPORT INFORMATION
  Report Type: Spontaneous
  Country: US (occurrence: None)
  Receive Date: 20160307
  Receipt Date: 20160307
  Transmission Date: 20160526
  Serious: Yes (Other)
  Sender: FDA-Public Use
  Company Number: None

PATIENT
  Age: 36 Year
  Sex: Female
  Weight: 54.43 kg

DRUGS (3)
  1. TRI-LO-SPRINTEC [Suspect]
     Active Substance: ETHINYL ESTRADIOL\NORGESTIMATE
     Indication: MUSCLE SPASMS
     Dosage: 28 ONCE DAILY TAKEN BY MOUTH
     Route: 048
     Dates: start: 20160212, end: 20160226
  2. TRI-LO-SPRINTEC [Suspect]
     Active Substance: ETHINYL ESTRADIOL\NORGESTIMATE
     Indication: CONTRACEPTION
     Dosage: 28 ONCE DAILY TAKEN BY MOUTH
     Route: 048
     Dates: start: 20160212, end: 20160226
  3. TRI-LO-SPRINTEC [Suspect]
     Active Substance: ETHINYL ESTRADIOL\NORGESTIMATE
     Indication: PAIN
     Dosage: 28 ONCE DAILY TAKEN BY MOUTH
     Route: 048
     Dates: start: 20160212, end: 20160226

REACTIONS (10)
  - Irritability [None]
  - Erythema [None]
  - Product substitution issue [None]
  - Migraine [None]
  - Peripheral swelling [None]
  - Headache [None]
  - Anger [None]
  - Crying [None]
  - Rash [None]
  - Pruritus [None]

NARRATIVE: CASE EVENT DATE: 20160212
